FAERS Safety Report 17878442 (Version 1)
Quarter: 2020Q2

REPORT INFORMATION
  Report Type: Spontaneous
  Country: US (occurrence: US)
  Receive Date: 20200610
  Receipt Date: 20200610
  Transmission Date: 20200714
  Serious: No
  Sender: FDA-Public Use
  Company Number: US-SHIRE-US202018842

PATIENT
  Sex: Male
  Weight: 108.84 kg

DRUGS (2)
  1. VYVANSE [Suspect]
     Active Substance: LISDEXAMFETAMINE DIMESYLATE
     Indication: ATTENTION DEFICIT HYPERACTIVITY DISORDER
     Dosage: 70 MILLIGRAM, 1X/DAY:QD
     Route: 048
     Dates: start: 2014
  2. VITAMIN C [Concomitant]
     Active Substance: ASCORBIC ACID
     Indication: PRODUCT USED FOR UNKNOWN INDICATION

REACTIONS (8)
  - Anxiety [Unknown]
  - Anger [Unknown]
  - Confusional state [Unknown]
  - Malaise [Unknown]
  - Drug ineffective [Unknown]
  - Sleep deficit [Unknown]
  - Discomfort [Unknown]
  - Product physical issue [Unknown]

NARRATIVE: CASE EVENT DATE: 2005
